FAERS Safety Report 6383161-7 (Version None)
Quarter: 2009Q3

REPORT INFORMATION
  Report Type: 
  Country: None (occurrence: None)
  Receive Date: 20090929
  Receipt Date: 20090914
  Transmission Date: 20100115
  Serious: Yes (Hospitalization)
  Sender: FDA-Public Use
  Company Number: 2009AL001943

PATIENT
  Age: 78 Year
  Sex: Male

DRUGS (55)
  1. DIGOXIN [Suspect]
     Dosage: 0.25MG, DAILY, PO
     Route: 048
     Dates: start: 20070420
  2. DIGOXIN [Suspect]
     Dosage: 0.125MG, DAILY, PO
     Route: 048
  3. LOPRESSOR [Concomitant]
  4. LISINOPRIL [Concomitant]
  5. ADVAIR DISKUS 100/50 [Concomitant]
  6. ATROVENT [Concomitant]
  7. LASIX [Concomitant]
  8. METOPROLOL [Concomitant]
  9. ISOSORBIDE [Concomitant]
  10. PRAVASTATIN [Concomitant]
  11. NEXIUM [Concomitant]
  12. SPIRONOLACTONE [Concomitant]
  13. ASPIRIN [Concomitant]
  14. POTASSIUM CHLORIDE [Concomitant]
  15. FLEXERIL [Concomitant]
  16. AMBIEN [Concomitant]
  17. IMDUR [Concomitant]
  18. SPIRIVA [Concomitant]
  19. BAYCOL [Concomitant]
  20. MECLIZINE [Concomitant]
  21. ZITHROMAX [Concomitant]
  22. B COMPLEX ELX [Concomitant]
  23. CLARINEX [Concomitant]
  24. MARCOF EXPECTORANT SYRUP [Concomitant]
  25. CARDIZEM [Concomitant]
  26. CIPRO [Concomitant]
  27. DIPHEN/ATROP [Concomitant]
  28. HYDROCODONE BITARTRATE AND ACETAMINOPHEN [Concomitant]
  29. NAPROXEN [Concomitant]
  30. NITROLINGUAL [Concomitant]
  31. PRILOSEC [Concomitant]
  32. COTRIM [Concomitant]
  33. TROVAN [Concomitant]
  34. VEETIDS [Concomitant]
  35. K-DUR [Concomitant]
  36. ISOTRATE [Concomitant]
  37. KLOR-CON [Concomitant]
  38. TUSSIONEX [Concomitant]
  39. DOXAZOSIN MESYLATE [Concomitant]
  40. PRAVACHOL [Concomitant]
  41. PACERONE [Concomitant]
  42. ALBUTEROL [Concomitant]
  43. AMOXICILLIN [Concomitant]
  44. LUSONEX [Concomitant]
  45. FEXOFENADINE [Concomitant]
  46. AMRIX [Concomitant]
  47. PREDNISONE TAB [Concomitant]
  48. COREG [Concomitant]
  49. KETEK [Concomitant]
  50. ALBUTEROL [Concomitant]
  51. WARFARIN SODIUM [Concomitant]
  52. IPRATROPIUM [Concomitant]
  53. LORATADINE [Concomitant]
  54. DIOVAN [Concomitant]
  55. LEVOTHROID [Concomitant]

REACTIONS (28)
  - ANGINA PECTORIS [None]
  - ASTHENIA [None]
  - ATRIAL FIBRILLATION [None]
  - BACK PAIN [None]
  - BLOOD CREATININE INCREASED [None]
  - BLOOD GLUCOSE INCREASED [None]
  - BRONCHITIS [None]
  - CARDIAC FAILURE CONGESTIVE [None]
  - CARDIOACTIVE DRUG LEVEL INCREASED [None]
  - CARDIOMEGALY [None]
  - CORONARY ARTERY DISEASE [None]
  - CORONARY ARTERY OCCLUSION [None]
  - CORONARY ARTERY STENOSIS [None]
  - COUGH [None]
  - CULTURE POSITIVE [None]
  - DILATATION VENTRICULAR [None]
  - ECONOMIC PROBLEM [None]
  - EJECTION FRACTION DECREASED [None]
  - FACET JOINT SYNDROME [None]
  - FLANK PAIN [None]
  - HEART RATE INCREASED [None]
  - INJURY [None]
  - INTERVERTEBRAL DISC DISORDER [None]
  - LEFT VENTRICULAR END-DIASTOLIC PRESSURE INCREASED [None]
  - RENAL FAILURE ACUTE [None]
  - SPINAL OSTEOARTHRITIS [None]
  - THERAPEUTIC AGENT TOXICITY [None]
  - WHEEZING [None]
